FAERS Safety Report 8416730-0 (Version None)
Quarter: 2012Q2

REPORT INFORMATION
  Report Type: 
  Country: None (occurrence: None)
  Receive Date: 20120606
  Receipt Date: 20120601
  Transmission Date: 20120825
  Serious: Yes (Hospitalization)
  Sender: FDA-Public Use
  Company Number: BE-PFIZER INC-2012132074

PATIENT
  Age: 74 Year
  Sex: Female

DRUGS (14)
  1. LIPITOR [Concomitant]
     Dosage: 20 MG, 1X/DAY
  2. ALDACTONE [Suspect]
     Dosage: 25 MG, 1X/DAY
  3. SULFAMETHOXAZOLE AND TRIMETHOPRIM [Interacting]
     Indication: ENTERITIS
  4. LIVOSTIN [Concomitant]
     Dosage: 1 GTT, 1X/DAY
  5. QUATRAL [Concomitant]
     Dosage: UNK
  6. TRAZODONE HCL [Concomitant]
     Dosage: 100 MG, 1X/DAY
  7. GLUCOPHAGE [Concomitant]
     Dosage: 425 MG, 1X/DAY
  8. ACETAMINOPHEN [Concomitant]
     Dosage: 1000 MG, 1X/DAY
  9. PANTOPRAZOLE [Concomitant]
     Dosage: 40 MG, 1X/DAY
  10. VOLTAREN - SLOW RELEASE ^NOVARTIS^ [Concomitant]
     Dosage: 75 MG, 1X/DAY
  11. LEVOTHYROXINE SODIUM [Concomitant]
     Dosage: 50 UG, 1X/DAY
  12. ZOLPIDEM TARTRATE [Concomitant]
     Dosage: 5 MG, 1X/DAY
  13. ASPIRIN [Concomitant]
     Dosage: 80 MG, 1X/DAY
     Route: 048
  14. OXYCONTIN [Concomitant]
     Dosage: 10 MG, 1X/DAY

REACTIONS (2)
  - DRUG INTERACTION [None]
  - HYPERKALAEMIA [None]
